FAERS Safety Report 8363381-2 (Version None)
Quarter: 2012Q2

REPORT INFORMATION
  Report Type: 
  Country: None (occurrence: None)
  Receive Date: 20120516
  Receipt Date: 20111221
  Transmission Date: 20120825
  Serious: Yes (Other)
  Sender: FDA-Public Use
  Company Number: US-ALEXION-A201101894

PATIENT
  Sex: Female

DRUGS (7)
  1. SOLIRIS [Suspect]
     Dosage: 900 MG, Q2W
     Route: 042
     Dates: start: 20110608
  2. TYLENOL (CAPLET) [Concomitant]
     Dosage: UNK, PRN
     Route: 048
  3. MULTI-VITAMIN [Concomitant]
     Dosage: UNK, QD
     Route: 048
  4. BENADRYL [Concomitant]
     Dosage: UNK, PRN
     Route: 048
  5. FOLIC ACID [Concomitant]
     Dosage: UNK, QD
     Route: 048
  6. ASPIRIN [Concomitant]
     Dosage: 325 MG, QD
     Route: 048
  7. VITAMIN B-12 [Concomitant]
     Dosage: UNK, 1 X MONTH
     Route: 030

REACTIONS (5)
  - NERVOUS SYSTEM DISORDER [None]
  - CONDITION AGGRAVATED [None]
  - DYSPNOEA [None]
  - NASOPHARYNGITIS [None]
  - FATIGUE [None]
